FAERS Safety Report 9436013 (Version 1)
Quarter: 2013Q3

REPORT INFORMATION
  Report Type: Spontaneous
  Country: US (occurrence: US)
  Receive Date: 20130801
  Receipt Date: 20130801
  Transmission Date: 20140515
  Serious: Yes (Hospitalization, Other)
  Sender: FDA-Public Use
  Company Number: US-009507513-1307USA015904

PATIENT
  Age: 61 Year
  Sex: Female
  Weight: 46.71 kg

DRUGS (5)
  1. MIRALAX [Suspect]
     Indication: IRRITABLE BOWEL SYNDROME
     Dosage: UNK
     Route: 048
     Dates: start: 201304
  2. MIRALAX [Suspect]
     Indication: OFF LABEL USE
  3. LYRICA [Suspect]
     Indication: FIBROMYALGIA
     Dosage: 300 MG, BID
     Route: 048
     Dates: start: 2006
  4. LYRICA [Suspect]
     Indication: ARTHRITIS
  5. LITHIUM CARBONATE [Suspect]
     Indication: BIPOLAR DISORDER
     Dosage: 300 MG, TID

REACTIONS (3)
  - Irritable bowel syndrome [Unknown]
  - Disability [Unknown]
  - Drug ineffective [Unknown]
